FAERS Safety Report 4447066-0 (Version None)
Quarter: 2004Q3

REPORT INFORMATION
  Report Type: 
  Country: None (occurrence: None)
  Receive Date: 20040812
  Receipt Date: 20040712
  Transmission Date: 20050211
  Serious: No
  Sender: FDA-Public Use
  Company Number: USA040772253

PATIENT
  Age: 84 Year
  Sex: Male

DRUGS (4)
  1. CIALIS [Suspect]
     Indication: DIABETES MELLITUS
     Dates: start: 20040601
  2. CIALIS [Suspect]
     Indication: ERECTILE DYSFUNCTION
     Dates: start: 20040601
  3. MICRONASE [Concomitant]
  4. ZESTRIL [Concomitant]

REACTIONS (2)
  - DISTURBANCE IN SEXUAL AROUSAL [None]
  - DRUG INEFFECTIVE [None]
